FAERS Safety Report 9705833 (Version 2)
Quarter: 2013Q4

REPORT INFORMATION
  Report Type: Spontaneous
  Country: US (occurrence: US)
  Receive Date: 20131122
  Receipt Date: 20131122
  Transmission Date: 20140711
  Serious: No
  Sender: FDA-Public Use
  Company Number: US-GILEAD-2008-0017747

PATIENT
  Sex: Female

DRUGS (2)
  1. LETAIRIS [Suspect]
     Indication: PULMONARY ARTERIAL HYPERTENSION
     Route: 048
     Dates: start: 20080731
  2. REVATIO [Concomitant]

REACTIONS (4)
  - Epistaxis [Unknown]
  - Mouth haemorrhage [Unknown]
  - Malaise [Unknown]
  - Rash [Unknown]
